FAERS Safety Report 16209793 (Version 2)
Quarter: 2019Q2

REPORT INFORMATION
  Report Type: Spontaneous
  Country: CO (occurrence: CO)
  Receive Date: 20190417
  Receipt Date: 20190612
  Transmission Date: 20190711
  Serious: Yes (Hospitalization)
  Sender: FDA-Public Use
  Company Number: PHHY2019CO080697

PATIENT
  Age: 27 Year
  Sex: Female

DRUGS (9)
  1. HYDROCODEINE [Suspect]
     Active Substance: DIHYDROCODEINE PHOSPHATE
     Indication: COUGH
     Route: 065
  2. BECLOMETHASONE [Suspect]
     Active Substance: BECLOMETHASONE
     Indication: HAEMOPTYSIS
  3. BECLOMETHASONE [Suspect]
     Active Substance: BECLOMETHASONE
     Indication: DYSPNOEA EXERTIONAL
  4. CLARITHROMYCIN. [Suspect]
     Active Substance: CLARITHROMYCIN
     Indication: HAEMOPTYSIS
  5. HYDROCODEINE [Suspect]
     Active Substance: DIHYDROCODEINE PHOSPHATE
     Indication: DYSPNOEA EXERTIONAL
  6. BECLOMETHASONE [Suspect]
     Active Substance: BECLOMETHASONE
     Indication: COUGH
     Route: 065
  7. CLARITHROMYCIN. [Suspect]
     Active Substance: CLARITHROMYCIN
     Indication: COUGH
     Route: 065
  8. CLARITHROMYCIN. [Suspect]
     Active Substance: CLARITHROMYCIN
     Indication: DYSPNOEA EXERTIONAL
  9. HYDROCODEINE [Suspect]
     Active Substance: DIHYDROCODEINE PHOSPHATE
     Indication: HAEMOPTYSIS

REACTIONS (35)
  - Product use in unapproved indication [Unknown]
  - Haemoptysis [Unknown]
  - Tachycardia [Unknown]
  - Tachypnoea [Unknown]
  - Thrombosis [Unknown]
  - Cough [Unknown]
  - Dyspnoea exertional [Unknown]
  - International normalised ratio abnormal [Unknown]
  - Pyrexia [Unknown]
  - Pallor [Unknown]
  - Hypopnoea [Unknown]
  - Intracardiac thrombus [Unknown]
  - Right ventricular dilatation [Unknown]
  - Systolic dysfunction [Unknown]
  - Gestational trophoblastic tumour [Unknown]
  - Asthenia [Unknown]
  - Diastolic dysfunction [Unknown]
  - Metastases to heart [Unknown]
  - Systemic inflammatory response syndrome [Unknown]
  - Tricuspid valve incompetence [Unknown]
  - Pulmonary arterial wedge pressure increased [Unknown]
  - Pulmonary hypertension [Unknown]
  - Pulmonary arterial pressure abnormal [Unknown]
  - Pleuritic pain [Unknown]
  - Stertor [Unknown]
  - Tachyarrhythmia [Unknown]
  - Ventricular dyskinesia [Unknown]
  - Pulmonary artery thrombosis [Unknown]
  - Rales [Unknown]
  - Dyspnoea [Unknown]
  - Pulmonary embolism [Unknown]
  - Superinfection [Unknown]
  - Breath sounds abnormal [Unknown]
  - Haemodynamic instability [Unknown]
  - Choriocarcinoma [Unknown]
